FAERS Safety Report 11934861 (Version 1)
Quarter: 2016Q1

REPORT INFORMATION
  Report Type: Spontaneous
  Country: US (occurrence: None)
  Receive Date: 20160120
  Receipt Date: 20160120
  Transmission Date: 20160526
  Serious: No
  Sender: FDA-Public Use
  Company Number: None

PATIENT
  Age: 72 Year
  Sex: Male
  Weight: 124.74 kg

DRUGS (5)
  1. TRADJENTA [Suspect]
     Active Substance: LINAGLIPTIN
     Indication: DIABETES MELLITUS
     Dosage: 1 PILL PER DAY ONCE
     Route: 048
     Dates: start: 20150410, end: 20160110
  2. METFORMIN [Concomitant]
     Active Substance: METFORMIN HYDROCHLORIDE
  3. ACARBOSE. [Concomitant]
     Active Substance: ACARBOSE
  4. GLIPIZIDE. [Concomitant]
     Active Substance: GLIPIZIDE
  5. INSULIN [Concomitant]
     Active Substance: INSULIN NOS

REACTIONS (1)
  - Back pain [None]

NARRATIVE: CASE EVENT DATE: 20160110
